FAERS Safety Report 5319347-X (Version None)
Quarter: 2007Q2

REPORT INFORMATION
  Report Type: 
  Country: None (occurrence: None)
  Receive Date: 20070508
  Receipt Date: 20070426
  Transmission Date: 20071010
  Serious: Yes (Death, Other)
  Sender: FDA-Public Use
  Company Number: US-PFIZER INC-2006154824

PATIENT
  Sex: Male

DRUGS (5)
  1. GABAPENTIN [Suspect]
     Indication: BIPOLAR DISORDER
  2. GABAPENTIN [Suspect]
     Indication: PANIC DISORDER
  3. ALPRAZOLAM [Concomitant]
  4. BUSPAR [Concomitant]
  5. PAXIL [Concomitant]

REACTIONS (3)
  - COMPLETED SUICIDE [None]
  - DRUG INEFFECTIVE [None]
  - OVERDOSE [None]
